FAERS Safety Report 19751966 (Version 1)
Quarter: 2021Q3

REPORT INFORMATION
  Report Type: Report from Study
  Country: None (occurrence: NL)
  Receive Date: 20210827
  Receipt Date: 20210827
  Transmission Date: 20211014
  Serious: Yes (Other)
  Sender: FDA-Public Use
  Company Number: NL-ABBVIE-21K-114-4051752-00

PATIENT
  Sex: Male

DRUGS (2)
  1. DUODOPA [Suspect]
     Active Substance: CARBIDOPA\LEVODOPA
     Indication: PARKINSON^S DISEASE
     Route: 050
  2. DUODOPA [Suspect]
     Active Substance: CARBIDOPA\LEVODOPA
     Dosage: MD: 8.5 ML, CD: 3.4 ML/H, ED: 3.0 ML, CND: 1.7 ML/H, END: 1.5 ML
     Route: 050

REACTIONS (7)
  - Fibroma [Recovering/Resolving]
  - Hallucination, tactile [Not Recovered/Not Resolved]
  - On and off phenomenon [Unknown]
  - Disturbance in attention [Not Recovered/Not Resolved]
  - Cataract [Not Recovered/Not Resolved]
  - Restlessness [Not Recovered/Not Resolved]
  - Myasthenia gravis [Not Recovered/Not Resolved]
